FAERS Safety Report 15584869 (Version 2)
Quarter: 2019Q4

REPORT INFORMATION
  Report Type: Spontaneous
  Country: US (occurrence: US)
  Receive Date: 20181105
  Receipt Date: 20191114
  Transmission Date: 20200122
  Serious: Yes (Life-Threatening, Hospitalization, Other)
  Sender: FDA-Public Use
  Company Number: US-GLENMARK PHARMACEUTICALS-2018GMK038060

PATIENT
  Age: 28 Year
  Sex: Female

DRUGS (4)
  1. HYDROCORTISONE BUTYRATE. [Suspect]
     Active Substance: HYDROCORTISONE BUTYRATE
     Indication: THYROTOXIC CRISIS
     Dosage: UNK
     Route: 065
  2. PROPRANOLOL [Suspect]
     Active Substance: PROPRANOLOL HYDROCHLORIDE
     Indication: THYROTOXIC CRISIS
     Dosage: 60 MG, TID (EVERY 8 HOURS)
     Route: 065
  3. POTASSIUM IODIDE. [Suspect]
     Active Substance: POTASSIUM IODIDE
     Indication: THYROTOXIC CRISIS
     Dosage: 5 GTT, QID (EVERY 6 HOURS) (SATURATED SOLUTION; GIVEN AN HOUR AFTER FIRST DOSE OF METHIMAZOLE)
     Route: 065
  4. METHIMAZOLE. [Suspect]
     Active Substance: METHIMAZOLE
     Indication: THYROTOXIC CRISIS
     Dosage: 20 MG, BID (EVERY 12 HOURS)
     Route: 065

REACTIONS (1)
  - Drug ineffective [Unknown]
